FAERS Safety Report 8102510-2 (Version None)
Quarter: 2011Q4

REPORT INFORMATION
  Report Type: 
  Country: None (occurrence: None)
  Receive Date: 20111222
  Receipt Date: 20110902
  Transmission Date: 20120403
  Serious: Yes (Hospitalization)
  Sender: FDA-Public Use
  Company Number: UTC-009959

PATIENT
  Age: 40 Year
  Sex: Female
  Weight: 129.5 kg

DRUGS (1)
  1. TYVASO [Suspect]
     Indication: PULMONARY ARTERIAL HYPERTENSION
     Dosage: (36 MCG), INHALATION
     Route: 055
     Dates: start: 20110601

REACTIONS (3)
  - OXYGEN SATURATION DECREASED [None]
  - CYSTITIS [None]
  - PYREXIA [None]
